FAERS Safety Report 23339296 (Version 2)
Quarter: 2024Q1

REPORT INFORMATION
  Report Type: Report from Study
  Country: EG (occurrence: EG)
  Receive Date: 20231226
  Receipt Date: 20240104
  Transmission Date: 20240409
  Serious: Yes (Other)
  Sender: FDA-Public Use
  Company Number: EG-SANDOZ-SDZ2023EG070693

PATIENT
  Age: 8 Year
  Sex: Male
  Weight: 26 kg

DRUGS (4)
  1. OMNITROPE [Suspect]
     Active Substance: SOMATROPIN
     Indication: Growth hormone deficiency
     Dosage: 0.7 MG, QD
     Route: 058
     Dates: start: 20230115
  2. SOMATROPIN [Suspect]
     Active Substance: SOMATROPIN
     Indication: Growth hormone deficiency
     Dosage: 58 IU
     Route: 058
  3. FELIX [Concomitant]
     Indication: Sinusitis
     Dosage: ONE TIME/DAILY
     Route: 055
  4. ZYRTEC [Concomitant]
     Active Substance: CETIRIZINE HYDROCHLORIDE
     Indication: Sinusitis
     Dosage: 5 CM/DAILY
     Route: 048

REACTIONS (10)
  - Muscular weakness [Not Recovered/Not Resolved]
  - Injection site discolouration [Not Recovered/Not Resolved]
  - Product substitution issue [Recovered/Resolved]
  - Discontinued product administered [Recovered/Resolved]
  - Multiple use of single-use product [Recovered/Resolved]
  - Wrong technique in product usage process [Recovered/Resolved]
  - Wrong device used [Not Recovered/Not Resolved]
  - Circumstance or information capable of leading to device use error [Recovered/Resolved]
  - Drug ineffective [Not Recovered/Not Resolved]
  - Overdose [Recovered/Resolved]

NARRATIVE: CASE EVENT DATE: 20230115
